FAERS Safety Report 5880287-9 (Version None)
Quarter: 2008Q3

REPORT INFORMATION
  Report Type: 
  Country: None (occurrence: None)
  Receive Date: 20080912
  Receipt Date: 20080905
  Transmission Date: 20090109
  Serious: Yes (Hospitalization, Other)
  Sender: FDA-Public Use
  Company Number: PHBS2006JP15230

PATIENT
  Age: 58 Year
  Sex: Male

DRUGS (3)
  1. GLEEVEC [Suspect]
     Indication: CHRONIC EOSINOPHILIC LEUKAEMIA
     Dosage: 100 MG/DAY
     Route: 048
     Dates: start: 20060120, end: 20060121
  2. GLEEVEC [Suspect]
     Dosage: 100 MG/DAY
     Route: 048
     Dates: start: 20060201, end: 20060213
  3. GLEEVEC [Suspect]
     Dosage: 100 MG/DAY
     Dates: start: 20060303, end: 20060306

REACTIONS (19)
  - ALTERED STATE OF CONSCIOUSNESS [None]
  - BASILAR ARTERY STENOSIS [None]
  - BLOOD CREATININE INCREASED [None]
  - C-REACTIVE PROTEIN INCREASED [None]
  - CEREBRAL ARTERY EMBOLISM [None]
  - COMPUTERISED TOMOGRAM ABNORMAL [None]
  - CSF CELL COUNT INCREASED [None]
  - DIARRHOEA [None]
  - DISORIENTATION [None]
  - DYSARTHRIA [None]
  - EOSINOPHILIA [None]
  - EYE MOVEMENT DISORDER [None]
  - HEMIPARESIS [None]
  - INFARCTION [None]
  - MENINGOENCEPHALITIS HERPETIC [None]
  - PYREXIA [None]
  - RENAL DISORDER [None]
  - VERTEBROBASILAR INSUFFICIENCY [None]
  - VOMITING [None]
